FAERS Safety Report 7208730-3 (Version None)
Quarter: 2010Q4

REPORT INFORMATION
  Report Type: 
  Country: None (occurrence: None)
  Receive Date: 20101222
  Receipt Date: 20101207
  Transmission Date: 20110411
  Serious: Yes (Death)
  Sender: FDA-Public Use
  Company Number: 1000017792

PATIENT
  Age: 43 Year
  Sex: Female
  Weight: 92 kg

DRUGS (3)
  1. CITALOPRAM (CITALOPRAM HYDROBROMIDE) (TABLETS) [Suspect]
     Dosage: 30 MG (30 MG,1 IN 1 D),ORAL
     Route: 048
  2. FLUANXOL DEPOT INJECTION (FLUPENTHIXOL DECANOATE) (INJECTION) [Suspect]
     Dosage: 4.2857 MG (60 MG,1 IN 2 WK,INTRAMUSCULAR
     Route: 030
  3. QUETIAPINE [Suspect]
     Dosage: 200 MG (200 MG,1 IN 1 D),ORAL
     Route: 048

REACTIONS (3)
  - DRUG TOXICITY [None]
  - MYOCARDIAL ISCHAEMIA [None]
  - RESUSCITATION [None]
